FAERS Safety Report 6639764-5 (Version None)
Quarter: 2010Q1

REPORT INFORMATION
  Report Type: 
  Country: None (occurrence: None)
  Receive Date: 20100318
  Receipt Date: 20100310
  Transmission Date: 20100710
  Serious: Yes (Other)
  Sender: FDA-Public Use
  Company Number: JP-BAYER-201011251BYL

PATIENT
  Age: 78 Year
  Sex: Male
  Weight: 44 kg

DRUGS (8)
  1. NEXAVAR [Suspect]
     Indication: HEPATIC NEOPLASM MALIGNANT
     Dosage: UNIT DOSE: 200 MG
     Route: 048
     Dates: start: 20090723, end: 20090731
  2. NEXAVAR [Suspect]
     Dosage: UNIT DOSE: 200 MG
     Route: 048
     Dates: start: 20091015, end: 20091022
  3. NEXAVAR [Suspect]
     Dosage: UNIT DOSE: 200 MG
     Route: 048
     Dates: start: 20091022, end: 20100204
  4. MEROPENEM [Suspect]
     Indication: CHOLECYSTITIS
     Route: 042
     Dates: start: 20090801, end: 20090801
  5. FOY [Suspect]
     Indication: DISSEMINATED INTRAVASCULAR COAGULATION
     Route: 042
     Dates: start: 20090731, end: 20090814
  6. AVISHOT [Concomitant]
     Dosage: SINCE BEFORE ADMINISTRATION
     Route: 048
  7. FLIVAS [Concomitant]
     Dosage: UNIT DOSE: 25 MG
     Route: 048
  8. ELSAMET [Concomitant]
     Dosage: SINCE BEFORE ADMINISTRATION
     Route: 048

REACTIONS (6)
  - DISSEMINATED INTRAVASCULAR COAGULATION [None]
  - EROSIVE OESOPHAGITIS [None]
  - GINGIVAL BLEEDING [None]
  - MUCOSAL HAEMORRHAGE [None]
  - PUNCTURE SITE HAEMORRHAGE [None]
  - RASH [None]
